FAERS Safety Report 22226380 (Version 10)
Quarter: 2023Q4

REPORT INFORMATION
  Report Type: Report from Study
  Country: TR (occurrence: None)
  Receive Date: 20230419
  Receipt Date: 20231103
  Transmission Date: 20240109
  Serious: Yes (Hospitalization)
  Sender: FDA-Public Use
  Company Number: TR-ROCHE-3330327

PATIENT
  Age: 69 Year
  Sex: Male
  Weight: 66 kg

DRUGS (27)
  1. TIRAGOLUMAB [Suspect]
     Active Substance: TIRAGOLUMAB
     Indication: Non-small cell lung cancer metastatic
     Dosage: ON 03/MAR/2023, HE RECEIVED 600 MG TIRAGOLUMAB PRIOR TO GENERAL CONDITION DISORDER DUE TO BRAIN META
     Route: 042
     Dates: start: 20230112
  2. ATEZOLIZUMAB [Suspect]
     Active Substance: ATEZOLIZUMAB
     Indication: Non-small cell lung cancer metastatic
     Dosage: ON 03/MAR/2023, HE RECEIVED 200 ML ATEZOLIZUMAB PRIOR TO GENERAL CONDITION DISORDER DUE TO BRAIN MET
     Route: 041
     Dates: start: 20230112
  3. CARBOPLATIN [Suspect]
     Active Substance: CARBOPLATIN
     Indication: Non-small cell lung cancer metastatic
     Dosage: ON 03/MAR/2023, HE RECEIVED CARBOPLATIN PRIOR TO GENERAL CONDITION DISORDER DUE TO BRAIN METASTASIS
     Route: 042
     Dates: start: 20230202
  4. CISPLATIN [Suspect]
     Active Substance: CISPLATIN
     Indication: Non-small cell lung cancer metastatic
     Route: 042
     Dates: start: 20230112
  5. PEMETREXED [Suspect]
     Active Substance: PEMETREXED
     Indication: Non-small cell lung cancer metastatic
     Dosage: ON 03/MAR/2023, HE RECEIVED PEMETREXED PRIOR TO GENERAL CONDITION DISORDER DUE TO BRAIN METASTASIS W
     Route: 042
     Dates: start: 20230112
  6. PEMETREXED [Suspect]
     Active Substance: PEMETREXED
     Dosage: ON 03/MAR/2023, HE RECEIVED PEMETREXED PRIOR TO GENERAL CONDITION DISORDER DUE TO BRAIN METASTASIS W
     Route: 042
  7. DEXAMETHASONE [Concomitant]
     Active Substance: DEXAMETHASONE
     Dates: start: 20230112
  8. PHENIRAMINE [Concomitant]
     Active Substance: PHENIRAMINE
     Dates: start: 20230112
  9. FOLIC ACID [Concomitant]
     Active Substance: FOLIC ACID
     Dates: start: 20230112
  10. MICARDIS [Concomitant]
     Active Substance: TELMISARTAN
     Indication: Hypertension
     Dates: start: 2002
  11. LACIDIPINE [Concomitant]
     Active Substance: LACIDIPINE
     Indication: Hypertension
     Dates: start: 2002
  12. LACIDIPINE [Concomitant]
     Active Substance: LACIDIPINE
     Dates: start: 20230415, end: 20230416
  13. JANUMET [Concomitant]
     Active Substance: METFORMIN HYDROCHLORIDE\SITAGLIPTIN PHOSPHATE
     Indication: Type 2 diabetes mellitus
     Dates: start: 2019
  14. JANUMET [Concomitant]
     Active Substance: METFORMIN HYDROCHLORIDE\SITAGLIPTIN PHOSPHATE
     Dates: start: 20230412, end: 20230426
  15. TRAMADOL HYDROCHLORIDE [Concomitant]
     Active Substance: TRAMADOL HYDROCHLORIDE
     Indication: Bone pain
     Dates: start: 202211
  16. CATAFLAM [Concomitant]
     Active Substance: DICLOFENAC POTASSIUM
     Indication: Bone pain
     Dates: start: 20230113, end: 20230406
  17. MAGNESIE CALCINEE [Concomitant]
     Indication: Constipation
     Dates: start: 20230303
  18. MAGNESIE CALCINEE [Concomitant]
     Indication: Hypomagnesaemia
  19. VOLTAREN [Concomitant]
     Active Substance: DICLOFENAC SODIUM
     Indication: Back pain
     Dates: start: 20230406
  20. HUMAN RED BLOOD CELL [Concomitant]
     Active Substance: HUMAN RED BLOOD CELL
     Indication: Anaemia
     Dosage: SUSPENSION
     Dates: start: 20230325, end: 20230325
  21. PANTONIX [Concomitant]
     Indication: Anaemia
     Dates: start: 20230323, end: 20230325
  22. PROPOFOL [Concomitant]
     Active Substance: PROPOFOL
     Indication: Anaemia
     Dates: start: 20230324, end: 20230324
  23. PARTEMOL [Concomitant]
     Indication: Anaemia
     Dosage: 10 G/100 ML 1 VIAL
     Dates: start: 20230324, end: 20230325
  24. PARTEMOL [Concomitant]
     Dosage: 10 G/100 ML 1 VIAL
     Dates: start: 20230414, end: 20230426
  25. NIOSTA [Concomitant]
     Indication: Anaemia
     Route: 048
     Dates: start: 20230324, end: 20230324
  26. POTASSIUM CHLORIDE [Concomitant]
     Active Substance: POTASSIUM CHLORIDE
     Indication: Anaemia
     Route: 042
     Dates: start: 20230325, end: 20230325
  27. SUCRALFATE [Concomitant]
     Active Substance: SUCRALFATE
     Indication: Anaemia
     Dates: start: 20230324, end: 20230324

REACTIONS (1)
  - Metastases to central nervous system [Recovering/Resolving]

NARRATIVE: CASE EVENT DATE: 20230411
